FAERS Safety Report 12862690 (Version 1)
Quarter: 2016Q4

REPORT INFORMATION
  Report Type: Spontaneous
  Country: None (occurrence: FR)
  Receive Date: 20161019
  Receipt Date: 20161019
  Transmission Date: 20170207
  Serious: Yes (Hospitalization)
  Sender: FDA-Public Use
  Company Number: FR-MERZ NORTH AMERICA, INC.-16MRZ-00625

PATIENT
  Age: 66 Year
  Sex: Male
  Weight: 75 kg

DRUGS (2)
  1. ASCLERA [Suspect]
     Active Substance: POLIDOCANOL
     Indication: VARICOSE VEIN
     Dosage: SEVERAL SESSIONS SINCE 2007, 2-4ML EACH SESSION
     Route: 042
     Dates: start: 2007, end: 2016
  2. HARVONI [Suspect]
     Active Substance: LEDIPASVIR\SOFOSBUVIR
     Indication: HEPATITIS C
     Dosage: 1/DAY?SEP. DOSAGES/INTERVAL: 1 IN 1 DAY
     Dates: start: 20150113, end: 20150407

REACTIONS (2)
  - Retinal vasculitis [Recovering/Resolving]
  - Retinal vascular occlusion [Recovering/Resolving]

NARRATIVE: CASE EVENT DATE: 201504
